FAERS Safety Report 16421838 (Version 5)
Quarter: 2019Q3

REPORT INFORMATION
  Report Type: Spontaneous
  Country: US (occurrence: US)
  Receive Date: 20190612
  Receipt Date: 20190723
  Transmission Date: 20191004
  Serious: Yes (Other)
  Sender: FDA-Public Use
  Company Number: US-ASTRAZENECA-2018SF15151

PATIENT
  Age: 73 Year
  Sex: Male
  Weight: 113.4 kg

DRUGS (31)
  1. PRILOSEC OTC [Suspect]
     Active Substance: OMEPRAZOLE MAGNESIUM
     Indication: GASTRIC PH DECREASED
     Route: 048
  2. PRAVASTATIN. [Concomitant]
     Active Substance: PRAVASTATIN
     Indication: BLOOD CHOLESTEROL ABNORMAL
  3. NYSTATIN. [Concomitant]
     Active Substance: NYSTATIN
  4. PRILOSEC [Suspect]
     Active Substance: OMEPRAZOLE MAGNESIUM
     Indication: GASTRIC PH DECREASED
     Dosage: GENERIC
     Route: 065
     Dates: start: 20140110, end: 20140210
  5. PANTOPRAZOLE [Suspect]
     Active Substance: PANTOPRAZOLE
     Indication: GASTROOESOPHAGEAL REFLUX DISEASE
     Dosage: GENERIC
     Route: 065
     Dates: start: 20160810, end: 20180116
  6. LOSARTAN. [Concomitant]
     Active Substance: LOSARTAN
     Indication: BLOOD PRESSURE MEASUREMENT
  7. CLOTRIMAZOLE. [Concomitant]
     Active Substance: CLOTRIMAZOLE
  8. CARVEDILOL. [Concomitant]
     Active Substance: CARVEDILOL
  9. LEVEMIR [Concomitant]
     Active Substance: INSULIN DETEMIR
  10. FUROSEMIDE. [Concomitant]
     Active Substance: FUROSEMIDE
     Indication: ACQUIRED CYSTIC KIDNEY DISEASE
  11. AMLODIPINE BESYLATE. [Concomitant]
     Active Substance: AMLODIPINE BESYLATE
     Indication: BLOOD PRESSURE MEASUREMENT
  12. HYDRALAZINE [Concomitant]
     Active Substance: HYDRALAZINE HYDROCHLORIDE
  13. NEXIUM [Suspect]
     Active Substance: ESOMEPRAZOLE MAGNESIUM
     Indication: GASTRIC PH DECREASED
     Route: 048
  14. PREVACID [Suspect]
     Active Substance: LANSOPRAZOLE
     Indication: GASTROOESOPHAGEAL REFLUX DISEASE
     Dosage: GENERIC
     Route: 065
     Dates: start: 20150206, end: 20160810
  15. IBUPROFEN. [Concomitant]
     Active Substance: IBUPROFEN
  16. TRIAMCINOLONE [Concomitant]
     Active Substance: TRIAMCINOLONE
  17. OFLOXACIN. [Concomitant]
     Active Substance: OFLOXACIN
  18. AMOXICILLIN. [Concomitant]
     Active Substance: AMOXICILLIN
  19. PRILOSEC [Suspect]
     Active Substance: OMEPRAZOLE MAGNESIUM
     Indication: GASTRIC PH DECREASED
     Route: 048
  20. PREVACID [Suspect]
     Active Substance: LANSOPRAZOLE
     Indication: GASTRIC PH DECREASED
     Dosage: GENERIC
     Route: 065
     Dates: start: 20150206, end: 20160810
  21. PREVACID [Suspect]
     Active Substance: LANSOPRAZOLE
     Indication: GASTRIC PH DECREASED
     Route: 065
     Dates: start: 20150206, end: 20160810
  22. PREVACID [Suspect]
     Active Substance: LANSOPRAZOLE
     Indication: GASTROOESOPHAGEAL REFLUX DISEASE
     Route: 065
     Dates: start: 20150206, end: 20160810
  23. DOXAZOSIN [Concomitant]
     Active Substance: DOXAZOSIN MESYLATE
     Indication: BLOOD PRESSURE MEASUREMENT
  24. KETOTIFEN [Concomitant]
     Active Substance: KETOTIFEN
  25. LORATADINE. [Concomitant]
     Active Substance: LORATADINE
  26. NIFEDIPINE. [Concomitant]
     Active Substance: NIFEDIPINE
  27. INDOMETHACIN. [Concomitant]
     Active Substance: INDOMETHACIN
  28. PRILOSEC [Suspect]
     Active Substance: OMEPRAZOLE MAGNESIUM
     Indication: GASTROOESOPHAGEAL REFLUX DISEASE
     Route: 048
  29. PRILOSEC [Suspect]
     Active Substance: OMEPRAZOLE MAGNESIUM
     Indication: GASTROOESOPHAGEAL REFLUX DISEASE
     Dosage: GENERIC
     Route: 065
     Dates: start: 20140110, end: 20140210
  30. GLIPIZIDE. [Concomitant]
     Active Substance: GLIPIZIDE
  31. FLUTICASONE. [Concomitant]
     Active Substance: FLUTICASONE
     Indication: HYPERSENSITIVITY

REACTIONS (7)
  - Tubulointerstitial nephritis [Unknown]
  - Acute kidney injury [Unknown]
  - Dyspepsia [Unknown]
  - End stage renal disease [Not Recovered/Not Resolved]
  - Chronic kidney disease [Not Recovered/Not Resolved]
  - Renal failure [Unknown]
  - Renal injury [Unknown]

NARRATIVE: CASE EVENT DATE: 2015
